FAERS Safety Report 7437315-9 (Version None)
Quarter: 2011Q2

REPORT INFORMATION
  Report Type: 
  Country: None (occurrence: None)
  Receive Date: 20110426
  Receipt Date: 20110420
  Transmission Date: 20111010
  Serious: Yes (Death)
  Sender: FDA-Public Use
  Company Number: GB-GENZYME-FLUD-1001096

PATIENT
  Age: 37 Year
  Sex: Male

DRUGS (5)
  1. FLUDARA [Suspect]
     Indication: B-CELL LYMPHOMA
  2. CYCLOPHOSPHAMIDE [Suspect]
     Indication: B-CELL LYMPHOMA
  3. FLUDARA [Suspect]
     Indication: STEM CELL TRANSPLANT
     Dosage: UNK
     Route: 065
  4. CYCLOPHOSPHAMIDE [Suspect]
     Indication: STEM CELL TRANSPLANT
     Dosage: UNK
     Route: 065
  5. CASPOFUNGIN [Concomitant]
     Indication: ANTIFUNGAL TREATMENT
     Dosage: 50 MG/KG, QD
     Route: 042

REACTIONS (1)
  - FUNGAL SEPSIS [None]
